FAERS Safety Report 6956898-6 (Version None)
Quarter: 2010Q3

REPORT INFORMATION
  Report Type: 
  Country: None (occurrence: None)
  Receive Date: 20100830
  Receipt Date: 20100602
  Transmission Date: 20110219
  Serious: No
  Sender: FDA-Public Use
  Company Number: US-ALLERGAN-1007189US

PATIENT
  Sex: Female

DRUGS (1)
  1. SANCTURA XR [Suspect]
     Indication: HYPERTONIC BLADDER
     Dosage: 60 MG, QD

REACTIONS (6)
  - CONSTIPATION [None]
  - DRY MOUTH [None]
  - FLATULENCE [None]
  - HEADACHE [None]
  - NASOPHARYNGITIS [None]
  - URINARY RETENTION [None]
